FAERS Safety Report 23971581 (Version 7)
Quarter: 2024Q3

REPORT INFORMATION
  Report Type: Spontaneous
  Country: US (occurrence: US)
  Receive Date: 20240613
  Receipt Date: 20240903
  Transmission Date: 20241017
  Serious: No
  Sender: PFIZER
  Company Number: US-PFIZER INC-202400190434

PATIENT
  Age: 14 Year
  Sex: Male
  Weight: 56.7 kg

DRUGS (1)
  1. GENOTROPIN [Suspect]
     Active Substance: SOMATROPIN
     Indication: Growth hormone deficiency
     Dosage: 2.4 MG, 1X/DAY
     Dates: start: 202402, end: 202406

REACTIONS (8)
  - Drug dose omission by device [Unknown]
  - Poor quality device used [Unknown]
  - Product preparation issue [Unknown]
  - Device chemical property issue [Unknown]
  - Device leakage [Unknown]
  - Device mechanical issue [Unknown]
  - Device use error [Unknown]
  - Device breakage [Unknown]

NARRATIVE: CASE EVENT DATE: 20240101
